FAERS Safety Report 10297381 (Version 2)
Quarter: 2014Q3

REPORT INFORMATION
  Report Type: Report from Study
  Country: MX (occurrence: MX)
  Receive Date: 20140711
  Receipt Date: 20140715
  Transmission Date: 20150326
  Serious: Yes (Death, Hospitalization, Other)
  Sender: FDA-Public Use
  Company Number: PHHY2014MX084589

PATIENT
  Age: 45 Year
  Sex: Male
  Weight: 53 kg

DRUGS (4)
  1. GLIVEC [Suspect]
     Active Substance: IMATINIB MESYLATE
     Dosage: 400 MG, UNK
     Dates: start: 20110107
  2. GLIVEC [Suspect]
     Active Substance: IMATINIB MESYLATE
     Dosage: 600 MG, UNK
     Dates: start: 20131126, end: 20140401
  3. HYDROXYUREA. [Concomitant]
     Active Substance: HYDROXYUREA
     Indication: CHRONIC MYELOID LEUKAEMIA
     Dosage: UNK UKN, UNK
     Dates: start: 20100825, end: 20100928
  4. GLIVEC [Suspect]
     Active Substance: IMATINIB MESYLATE
     Indication: CHRONIC MYELOID LEUKAEMIA
     Dosage: UNK UKN, UNK
     Dates: start: 20100928, end: 20101202

REACTIONS (9)
  - Death [Fatal]
  - Neutropenia [Not Recovered/Not Resolved]
  - Haemorrhagic disorder [Not Recovered/Not Resolved]
  - Drug intolerance [Not Recovered/Not Resolved]
  - Blast crisis in myelogenous leukaemia [Unknown]
  - Thrombocytopenia [Unknown]
  - Pneumonia [Not Recovered/Not Resolved]
  - Pyrexia [Not Recovered/Not Resolved]
  - Anaemia [Not Recovered/Not Resolved]

NARRATIVE: CASE EVENT DATE: 20140125
